FAERS Safety Report 4672964-2 (Version None)
Quarter: 2005Q2

REPORT INFORMATION
  Report Type: 
  Country: None (occurrence: None)
  Receive Date: 20050524
  Receipt Date: 20050330
  Transmission Date: 20051028
  Serious: Yes (Death)
  Sender: FDA-Public Use
  Company Number: 2005S1001788

PATIENT
  Age: 23 Year
  Sex: Male
  Weight: 70 kg

DRUGS (6)
  1. FENTANYL [Suspect]
     Dosage: 75 MCG/HR; TDER
     Route: 062
  2. LORTAB [Suspect]
  3. METHADONE HCL [Suspect]
  4. ALPRAZOLAM [Concomitant]
  5. OXYCODONE HCL [Concomitant]
  6. FLUOXETINE [Concomitant]

REACTIONS (2)
  - MULTIPLE DRUG OVERDOSE [None]
  - SELF-MEDICATION [None]
